FAERS Safety Report 9789617 (Version 1)
Quarter: 2013Q4

REPORT INFORMATION
  Report Type: Spontaneous
  Country: FR (occurrence: FR)
  Receive Date: 20131231
  Receipt Date: 20131231
  Transmission Date: 20140711
  Serious: Yes (Hospitalization)
  Sender: FDA-Public Use
  Company Number: FR-BRISTOL-MYERS SQUIBB COMPANY-19956135

PATIENT
  Age: 86 Year
  Sex: Male

DRUGS (11)
  1. LOPRIL [Suspect]
     Indication: HYPERTENSION
     Route: 048
     Dates: end: 20120228
  2. GLUCOPHAGE [Suspect]
     Indication: TYPE 2 DIABETES MELLITUS
     Route: 048
     Dates: end: 20120228
  3. FENOFIBRATE [Suspect]
     Indication: HYPERCHOLESTEROLAEMIA
     Route: 048
  4. ESIDREX [Suspect]
     Indication: HYPERTENSION
     Route: 048
     Dates: end: 20120228
  5. MONO-TILDIEM [Concomitant]
  6. VASTAREL [Concomitant]
  7. KARDEGIC [Concomitant]
  8. CREON [Concomitant]
  9. TARDYFERON [Concomitant]
  10. TOFRANIL [Concomitant]
  11. SILODOSIN [Concomitant]

REACTIONS (2)
  - Pancreatitis acute [Recovered/Resolved]
  - Abdominal pain upper [Recovered/Resolved]
